FAERS Safety Report 26136957 (Version 1)
Quarter: 2025Q4

REPORT INFORMATION
  Report Type: Spontaneous
  Country: US (occurrence: None)
  Receive Date: 20251209
  Receipt Date: 20251209
  Transmission Date: 20260117
  Serious: Yes (Other)
  Sender: FDA-CTU
  Company Number: None

PATIENT
  Sex: Female

DRUGS (10)
  1. LENALIDOMIDE [Suspect]
     Active Substance: LENALIDOMIDE
     Indication: Plasma cell myeloma
     Dosage: OTHER FREQUENCY : DAILY FOR 21 DAYS ON AND 7 DAYS OFF;
     Route: 048
     Dates: start: 20251125
  2. ACETAMINOPHEN [Concomitant]
     Active Substance: ACETAMINOPHEN
  3. ACYCLOVIR [Concomitant]
     Active Substance: ACYCLOVIR
  4. ADVAIR HFA AER [Concomitant]
  5. ALBUTEROL [Concomitant]
     Active Substance: ALBUTEROL
  6. AMILORIDE [Concomitant]
     Active Substance: AMILORIDE
  7. ATIVAN [Concomitant]
     Active Substance: LORAZEPAM
  8. ATORVASTATIN [Concomitant]
     Active Substance: ATORVASTATIN
  9. BACTRIM [Concomitant]
     Active Substance: SULFAMETHOXAZOLE\TRIMETHOPRIM
  10. BREO ELLIPTA [Concomitant]
     Active Substance: FLUTICASONE FUROATE\VILANTEROL TRIFENATATE

REACTIONS (6)
  - Diarrhoea [None]
  - Therapy cessation [None]
  - Loss of personal independence in daily activities [None]
  - Fatigue [None]
  - Plasma cell myeloma [None]
  - Therapy change [None]
